FAERS Safety Report 9588923 (Version 1)
Quarter: 2013Q4

REPORT INFORMATION
  Report Type: Spontaneous
  Country: US (occurrence: US)
  Receive Date: 20131003
  Receipt Date: 20131003
  Transmission Date: 20140711
  Serious: No
  Sender: FDA-Public Use
  Company Number: US-AMGEN-USASP2012067269

PATIENT
  Age: 83 Year
  Sex: Male

DRUGS (1)
  1. ENBREL [Suspect]
     Indication: RHEUMATOID ARTHRITIS
     Dosage: 50 MG, QWK
     Route: 058
     Dates: start: 201205

REACTIONS (5)
  - Asthenia [Recovered/Resolved]
  - Blood count abnormal [Recovered/Resolved]
  - Amnesia [Recovered/Resolved]
  - Fall [Recovered/Resolved]
  - Viral infection [Recovered/Resolved]
